FAERS Safety Report 8235176-1 (Version None)
Quarter: 2012Q1

REPORT INFORMATION
  Report Type: 
  Country: None (occurrence: None)
  Receive Date: 20120326
  Receipt Date: 20120316
  Transmission Date: 20120608
  Serious: Yes (Other)
  Sender: FDA-Public Use
  Company Number: US-ROCHE-765495

PATIENT
  Sex: Male
  Weight: 95.34 kg

DRUGS (1)
  1. ACCUTANE [Suspect]
     Indication: ACNE
     Route: 065
     Dates: start: 20010501, end: 20020101

REACTIONS (6)
  - CROHN'S DISEASE [None]
  - INTESTINAL HAEMORRHAGE [None]
  - DEPRESSION [None]
  - INFLAMMATORY BOWEL DISEASE [None]
  - SMALL INTESTINAL OBSTRUCTION [None]
  - GASTROINTESTINAL STENOSIS [None]
